FAERS Safety Report 10906676 (Version 1)
Quarter: 2015Q1

REPORT INFORMATION
  Report Type: Report from Study
  Country: JP (occurrence: JP)
  Receive Date: 20150312
  Receipt Date: 20150312
  Transmission Date: 20150721
  Serious: Yes (Death)
  Sender: FDA-Public Use
  Company Number: JP-BIOGENIDEC-2015BI032649

PATIENT
  Age: 48 Year
  Sex: Male

DRUGS (10)
  1. GASTER [Concomitant]
     Active Substance: FAMOTIDINE
  2. VANCOMYCIN [Concomitant]
     Active Substance: VANCOMYCIN
     Dates: start: 20080108
  3. CARBENIN (PANIPENEM BETAMIPRON) [Concomitant]
  4. BETAFERON (INTERFERON BETA 1B) [Concomitant]
  5. MVI 3 [Concomitant]
  6. HUMULIN R (INSULIN) [Concomitant]
  7. AVONEX [Suspect]
     Active Substance: INTERFERON BETA-1A
     Indication: RELAPSING-REMITTING MULTIPLE SCLEROSIS
     Route: 030
     Dates: start: 20080103, end: 20120301
  8. MVI-9 MULT-VITAMIN [Concomitant]
  9. PN TWIN [Concomitant]
  10. INTRALIPOS (SOYBEAN OIL) [Concomitant]

REACTIONS (1)
  - Death [Fatal]

NARRATIVE: CASE EVENT DATE: 20120301
